FAERS Safety Report 12760150 (Version 2)
Quarter: 2016Q3

REPORT INFORMATION
  Report Type: Report from Study
  Country: US (occurrence: US)
  Receive Date: 20160919
  Receipt Date: 20160921
  Transmission Date: 20161109
  Serious: Yes (Hospitalization)
  Sender: FDA-Public Use
  Company Number: US-EXELIXIS-CABO-16007090

PATIENT
  Age: 74 Year
  Sex: Male

DRUGS (4)
  1. OPDIVO [Concomitant]
     Active Substance: NIVOLUMAB
  2. COMETRIQ [Suspect]
     Active Substance: CABOZANTINIB S-MALATE
     Dosage: 20 MG, QD
     Route: 048
     Dates: start: 20160909
  3. COMETRIQ [Suspect]
     Active Substance: CABOZANTINIB S-MALATE
     Dosage: 40 MG, QD
     Route: 048
     Dates: start: 201605, end: 20160614
  4. COMETRIQ [Suspect]
     Active Substance: CABOZANTINIB S-MALATE
     Indication: RENAL CANCER
     Dosage: 60 MG, QD
     Route: 048
     Dates: start: 20151208, end: 201601

REACTIONS (6)
  - Fall [Unknown]
  - Constipation [Unknown]
  - Thrombosis [Not Recovered/Not Resolved]
  - Memory impairment [Unknown]
  - Off label use [Unknown]
  - Asthenia [Unknown]

NARRATIVE: CASE EVENT DATE: 20160601
